FAERS Safety Report 17561890 (Version 1)
Quarter: 2020Q1

REPORT INFORMATION
  Report Type: Spontaneous
  Country: DE (occurrence: DE)
  Receive Date: 20200319
  Receipt Date: 20200319
  Transmission Date: 20200409
  Serious: Yes (Hospitalization)
  Sender: FDA-Public Use
  Company Number: DE-TEVA-2020-DE-1202565

PATIENT
  Age: 71 Year
  Sex: Female
  Weight: 69 kg

DRUGS (9)
  1. MOXIFLOXACIN. [Interacting]
     Active Substance: MOXIFLOXACIN
     Dosage: 400 MG
     Route: 048
  2. SPIRONOLACTONE. [Interacting]
     Active Substance: SPIRONOLACTONE
     Dosage: 50 MILLIGRAM DAILY; 50 MG, 1-0-0-0
     Route: 048
  3. TELMISARTAN. [Suspect]
     Active Substance: TELMISARTAN
     Dosage: 80 MILLIGRAM DAILY; 80 MG, 1-0-0-0
     Route: 048
  4. ALLOPURINOL. [Interacting]
     Active Substance: ALLOPURINOL
     Dosage: 300 MILLIGRAM DAILY; 300 MG, 1-0-0-0
     Route: 048
  5. VERAPAMIL [Interacting]
     Active Substance: VERAPAMIL HYDROCHLORIDE
     Dosage: 40 MILLIGRAM DAILY; 40 MG, 1-0-0-0
     Route: 048
  6. SIMVASTATIN. [Interacting]
     Active Substance: SIMVASTATIN
     Dosage: 40 MILLIGRAM DAILY; 40 MG, 1-0-0-0
     Route: 048
  7. EDOXABAN [Suspect]
     Active Substance: EDOXABAN TOSYLATE
     Dosage: 60 MG, 1-0-0-0
     Route: 048
  8. CYANOCOBALAMIN (VITAMIN B12) [Concomitant]
     Dosage: 1 MILLIGRAM DAILY; 1 MG, 1-0-0-0
     Route: 048
  9. TORASEMIDE [Interacting]
     Active Substance: TORSEMIDE
     Dosage: 20 MILLIGRAM DAILY; 10 MG, 1-1-0-0
     Route: 048

REACTIONS (11)
  - Cough [Unknown]
  - Hyperthyroidism [Unknown]
  - Dyspnoea [Unknown]
  - Renal impairment [Unknown]
  - Product used for unknown indication [Unknown]
  - Localised infection [Unknown]
  - Chest pain [Unknown]
  - Pericardial effusion [Unknown]
  - Labelled drug-drug interaction medication error [Unknown]
  - Electrolyte imbalance [Unknown]
  - Product monitoring error [Unknown]
